FAERS Safety Report 5298117-5 (Version None)
Quarter: 2007Q2

REPORT INFORMATION
  Report Type: 
  Country: None (occurrence: None)
  Receive Date: 20070416
  Receipt Date: 20070403
  Transmission Date: 20071010
  Serious: Yes (Other)
  Sender: FDA-Public Use
  Company Number: GR-ROCHE-490763

PATIENT
  Sex: Female
  Weight: 110 kg

DRUGS (6)
  1. XENICAL [Suspect]
     Indication: DRUG USE FOR UNKNOWN INDICATION
     Route: 048
  2. XANAX [Concomitant]
     Indication: ANXIETY
  3. FLUOXETINE HYDROCHLORIDE [Concomitant]
     Indication: ANXIETY
     Dosage: TRADE NAME REPORTED AS LADOSE.
  4. T4 [Concomitant]
  5. METHIMAZOLE [Concomitant]
     Dosage: TRADE NAME REPORTED AS UNIMAZOLE.
  6. LOBIVON [Concomitant]
     Indication: HYPERTENSION

REACTIONS (2)
  - DRUG INEFFECTIVE [None]
  - WEIGHT INCREASED [None]
